FAERS Safety Report 17871682 (Version 2)
Quarter: 2021Q3

REPORT INFORMATION
  Report Type: Spontaneous
  Country: US (occurrence: US)
  Receive Date: 20200608
  Receipt Date: 20210712
  Transmission Date: 20211014
  Serious: Yes (Other)
  Sender: FDA-Public Use
  Company Number: US-TEVA-2020-US-1245001

PATIENT
  Age: 58 Year
  Sex: Male

DRUGS (6)
  1. VALSARTAN AUROBINDO [Suspect]
     Active Substance: VALSARTAN
     Indication: HYPERTENSION
     Dosage: DOSAGE: 160 MG
     Route: 065
     Dates: start: 20170729, end: 20170927
  2. VALSARTAN OHM [Suspect]
     Active Substance: VALSARTAN
     Indication: HYPERTENSION
     Dosage: DOSAGE: 160 MG
     Route: 065
     Dates: start: 20170919, end: 20171019
  3. VALSARTAN AUROBINDO [Suspect]
     Active Substance: VALSARTAN
     Dosage: DOSAGE DETAILS: 160 MG
     Route: 065
     Dates: start: 20180618, end: 20180817
  4. VALSARTAN SOLCO [Suspect]
     Active Substance: VALSARTAN
     Indication: HYPERTENSION
     Dosage: DOSAGE: 160 MG
     Route: 065
     Dates: start: 20180520, end: 20180619
  5. VALSARTAN AUROBINDO [Suspect]
     Active Substance: VALSARTAN
     Dosage: DOSAGE DETAILS: 160 MG
     Route: 065
     Dates: start: 20171017, end: 20180614
  6. VALSARTAN/HYDROCHLORTHIAZIDE AUROBINDO [Suspect]
     Active Substance: HYDROCHLOROTHIAZIDE\VALSARTAN
     Indication: HYPERTENSION
     Dosage: DOSAGE DETAILS: 12.5/160 MG
     Route: 065
     Dates: start: 20160322, end: 20170731

REACTIONS (1)
  - Prostate cancer [Recovered/Resolved]
